FAERS Safety Report 10050893 (Version 3)
Quarter: 2014Q2

REPORT INFORMATION
  Report Type: Spontaneous
  Country: US (occurrence: US)
  Receive Date: 20140401
  Receipt Date: 20140527
  Transmission Date: 20141212
  Serious: Yes (Hospitalization)
  Sender: FDA-Public Use
  Company Number: US-GLAXOSMITHKLINE-A0870675A

PATIENT
  Sex: Female

DRUGS (8)
  1. AVANDIA [Suspect]
     Indication: TYPE 2 DIABETES MELLITUS
     Route: 048
     Dates: start: 200106, end: 20051024
  2. AVANDAMET [Suspect]
     Indication: TYPE 2 DIABETES MELLITUS
     Route: 048
     Dates: start: 20050706
  3. VASOTEC [Concomitant]
  4. GLUCOPHAGE [Concomitant]
  5. ENALAPRIL [Concomitant]
  6. TYLENOL [Concomitant]
  7. ASPIRIN [Concomitant]
  8. ZESTORETIC [Concomitant]

REACTIONS (1)
  - Myocardial infarction [Not Recovered/Not Resolved]
